FAERS Safety Report 17123453 (Version 1)
Quarter: 2019Q4

REPORT INFORMATION
  Report Type: Spontaneous
  Country: US (occurrence: US)
  Receive Date: 20191206
  Receipt Date: 20191206
  Transmission Date: 20200122
  Serious: No
  Sender: FDA-Public Use
  Company Number: US-009507513-1911USA012010

PATIENT
  Age: 45 Year
  Sex: Female

DRUGS (3)
  1. DOXYCYCLINE. [Concomitant]
     Active Substance: DOXYCYCLINE
  2. PREDNISONE. [Concomitant]
     Active Substance: PREDNISONE
  3. PROVENTIL [Suspect]
     Active Substance: ALBUTEROL
     Indication: RESPIRATORY TRACT INFECTION VIRAL
     Dosage: 2 PUFFS, EVERY 6 HOURS (Q6H)
     Dates: start: 20191112

REACTIONS (2)
  - Product quality issue [Unknown]
  - Product dose omission [Unknown]

NARRATIVE: CASE EVENT DATE: 201911
